FAERS Safety Report 8871989 (Version 1)
Quarter: 2012Q4

REPORT INFORMATION
  Report Type: 
  Country: US (occurrence: US)
  Receive Date: 20121023
  Receipt Date: 20121023
  Transmission Date: 20130627
  Serious: Yes (Death, Hospitalization)
  Sender: FDA-Public Use
  Company Number: US-ASTELLAS-2008US000786

PATIENT
  Age: 58 Year
  Sex: Male

DRUGS (4)
  1. PROGRAF [Suspect]
     Indication: RENAL TRANSPLANT
     Dosage: 1 mg, bid
     Route: 048
  2. PROGRAF [Suspect]
     Dosage: 1mg qam, 2mg qpm
     Route: 048
     Dates: start: 20080303, end: 20080319
  3. PROGRAF [Suspect]
     Dosage: 4 mg, qam, unk mg qpm
     Route: 048
     Dates: start: 20080319
  4. MYFORTIC [Concomitant]
     Indication: PRODUCT USED FOR UNKNOWN INDICATION

REACTIONS (3)
  - Drug ineffective [Unknown]
  - Death [Fatal]
  - Kidney transplant rejection [Recovering/Resolving]
